FAERS Safety Report 7926893-9 (Version None)
Quarter: 2011Q4

REPORT INFORMATION
  Report Type: 
  Country: None (occurrence: None)
  Receive Date: 20111118
  Receipt Date: 20111115
  Transmission Date: 20120403
  Serious: Yes (Death, Hospitalization)
  Sender: FDA-Public Use
  Company Number: PL-PFIZER INC-2006118878

PATIENT
  Age: 75 Year
  Sex: Female
  Weight: 70 kg

DRUGS (7)
  1. TRIMETAZIDINE [Concomitant]
     Route: 048
     Dates: start: 20060918, end: 20060929
  2. SIOFOR [Concomitant]
     Route: 048
  3. SUNITINIB MALATE [Suspect]
     Indication: RENAL CELL CARCINOMA
     Dosage: 37.5 MG, 1X/DAY, DAILY 4/2
     Route: 048
     Dates: start: 20060429, end: 20060929
  4. EFFOX LONG [Concomitant]
     Route: 048
     Dates: start: 20060529, end: 20060929
  5. DIABREZIDE [Concomitant]
     Route: 048
  6. MOLSIDOMINA [Concomitant]
     Route: 048
     Dates: start: 20060529, end: 20060929
  7. VITAMIN B COMPLEX CAP [Concomitant]
     Route: 048

REACTIONS (1)
  - SHOCK [None]
